FAERS Safety Report 8355511 (Version 3)
Quarter: 2013Q1

REPORT INFORMATION
  Report Type: Spontaneous
  Country: US (occurrence: US)
  Receive Date: 20120126
  Receipt Date: 20130308
  Transmission Date: 20140127
  Serious: Yes (Congenital Anomaly, Other)
  Sender: FDA-Public Use
  Company Number: US-PFIZER INC-2012018044

PATIENT
  Sex: Male
  Weight: 3.35 kg

DRUGS (7)
  1. ZOLOFT [Suspect]
     Dosage: 50 MG, 1X/DAY
     Route: 064
     Dates: start: 20001107
  2. EFFEXOR [Concomitant]
     Dosage: UNK
     Route: 064
  3. NATALCARE CFE 60 [Concomitant]
     Dosage: UNK
     Route: 064
  4. NITROFUR MAC [Concomitant]
     Dosage: UNK
     Route: 064
  5. PPA/GG CR [Concomitant]
     Dosage: UNK
     Route: 064
  6. CELEXA [Concomitant]
     Dosage: UNK
     Route: 064
  7. ZYRTEC [Concomitant]
     Dosage: UNK
     Route: 064

REACTIONS (14)
  - Maternal exposure timing unspecified [Unknown]
  - Heart disease congenital [Unknown]
  - Hypoplastic left heart syndrome [Unknown]
  - Mitral valve hypoplasia [Unknown]
  - Ventricular septal defect [Unknown]
  - Coarctation of the aorta [Unknown]
  - Cardiac failure congestive [Unknown]
  - Tricuspid valve incompetence [Unknown]
  - Congenital cardiovascular anomaly [Unknown]
  - Congenital heart valve disorder [Unknown]
  - Atrial septal defect [Unknown]
  - Right ventricular hypertrophy [Unknown]
  - Cardiomegaly [Unknown]
  - Metabolic acidosis [Unknown]
